FAERS Safety Report 5525327-1 (Version None)
Quarter: 2007Q4

REPORT INFORMATION
  Report Type: 
  Country: None (occurrence: None)
  Receive Date: 20071120
  Receipt Date: 20071120
  Transmission Date: 20080405
  Serious: Yes (Hospitalization)
  Sender: FDA-Public Use
  Company Number: None

PATIENT
  Sex: Female
  Weight: 88 kg

DRUGS (5)
  1. TEMOZOLOMIDE [Suspect]
     Dosage: 1450 MG
  2. TEMOZOLOMIDE [Suspect]
  3. BACTRIM DS [Concomitant]
  4. DECADRON [Concomitant]
  5. KEPPRA [Concomitant]

REACTIONS (4)
  - ASTHENIA [None]
  - CUSHINGOID [None]
  - LYMPHOPENIA [None]
  - ORAL CANDIDIASIS [None]
